FAERS Safety Report 16402561 (Version 2)
Quarter: 2019Q2

REPORT INFORMATION
  Report Type: Spontaneous
  Country: US (occurrence: US)
  Receive Date: 20190607
  Receipt Date: 20190607
  Transmission Date: 20190711
  Serious: No
  Sender: FDA-Public Use
  Company Number: US-MALLINCKRODT-T201803693

PATIENT
  Sex: Male
  Weight: 82 kg

DRUGS (1)
  1. HYDROCODONE/ACETAMINOPHEN [Suspect]
     Active Substance: ACETAMINOPHEN\HYDROCODONE
     Indication: PAIN
     Dosage: 10/325MG, 1 TABLET THREE TIMES DAILY
     Route: 048
     Dates: start: 20180810, end: 20180818

REACTIONS (4)
  - Hypersensitivity [Unknown]
  - Vision blurred [Unknown]
  - Drug ineffective [Unknown]
  - Mental disorder [Unknown]
